FAERS Safety Report 9999816 (Version 3)
Quarter: 2014Q1

REPORT INFORMATION
  Report Type: Spontaneous
  Country: US (occurrence: US)
  Receive Date: 20140312
  Receipt Date: 20140326
  Transmission Date: 20141002
  Serious: Yes (Disabling, Other)
  Sender: FDA-Public Use
  Company Number: US-PFIZER INC-2014054455

PATIENT
  Age: 60 Year
  Sex: Female
  Weight: 56.69 kg

DRUGS (7)
  1. LYRICA [Suspect]
     Indication: FIBROMYALGIA
     Dosage: 75MG IN MORNING AND 25MG IN AFTERNOON, 2X/DAY
     Route: 048
  2. COMBIPATCH [Concomitant]
     Dosage: .05-14MG, UNK
  3. HYDROCORTISONE [Concomitant]
     Dosage: UNK
  4. CYMBALTA [Concomitant]
     Dosage: UNK
  5. CLONAZEPAM [Concomitant]
     Dosage: UNK
  6. OMEPRAZOLE [Concomitant]
     Dosage: UNK
  7. NEFAZODONE [Concomitant]
     Dosage: UNK

REACTIONS (3)
  - Adrenal insufficiency [Unknown]
  - Pituitary tumour [Unknown]
  - Impaired work ability [Unknown]
